FAERS Safety Report 14605293 (Version 1)
Quarter: 2018Q1

REPORT INFORMATION
  Report Type: Report from Study
  Country: US (occurrence: US)
  Receive Date: 20180306
  Receipt Date: 20180306
  Transmission Date: 20180509
  Serious: Yes (Death, Hospitalization)
  Sender: FDA-Public Use
  Company Number: US-ACTELION-A-NJ2017-148948

PATIENT
  Age: 64 Year
  Sex: Female

DRUGS (13)
  1. METOPROLOL. [Concomitant]
     Active Substance: METOPROLOL
  2. IRON [Concomitant]
     Active Substance: IRON
  3. LISINOPRIL. [Concomitant]
     Active Substance: LISINOPRIL
  4. SILDENAFIL. [Concomitant]
     Active Substance: SILDENAFIL
  5. REMODULIN [Concomitant]
     Active Substance: TREPROSTINIL
  6. OPSUMIT [Suspect]
     Active Substance: MACITENTAN
     Dosage: 10 MG, QD
     Route: 048
     Dates: start: 20160118
  7. CALCIUM [Concomitant]
     Active Substance: CALCIUM
  8. CARVEDILOL. [Concomitant]
     Active Substance: CARVEDILOL
  9. FUROSEMIDE. [Concomitant]
     Active Substance: FUROSEMIDE
  10. OPSUMIT [Suspect]
     Active Substance: MACITENTAN
     Indication: PULMONARY ARTERIAL HYPERTENSION
     Dosage: 10 MG, QD
     Route: 048
     Dates: start: 20151222
  11. PANTOPRAZOLE [Concomitant]
     Active Substance: PANTOPRAZOLE
  12. MULTIVITAMIN [Concomitant]
     Active Substance: VITAMINS
  13. POTASSIUM [Concomitant]
     Active Substance: POTASSIUM

REACTIONS (6)
  - Cardiac failure congestive [Unknown]
  - Upper respiratory tract infection [Recovered/Resolved]
  - Condition aggravated [Unknown]
  - Cardiac failure acute [Recovering/Resolving]
  - Pulmonary arterial hypertension [Unknown]
  - Death [Fatal]
